FAERS Safety Report 25339688 (Version 1)
Quarter: 2025Q2

REPORT INFORMATION
  Report Type: Spontaneous
  Country: US (occurrence: US)
  Receive Date: 20250521
  Receipt Date: 20250521
  Transmission Date: 20250716
  Serious: No
  Sender: Kenvue
  Company Number: US-KENVUE-20250502571

PATIENT
  Sex: Female

DRUGS (8)
  1. TYLENOL [Suspect]
     Active Substance: ACETAMINOPHEN
     Indication: Pain in extremity
     Route: 065
  2. TYLENOL [Suspect]
     Active Substance: ACETAMINOPHEN
     Indication: Back pain
  3. TYLENOL [Suspect]
     Active Substance: ACETAMINOPHEN
     Indication: Arthralgia
  4. TYLENOL [Suspect]
     Active Substance: ACETAMINOPHEN
     Indication: Bone pain
  5. TYLENOL [Suspect]
     Active Substance: ACETAMINOPHEN
     Indication: Fatigue
  6. TYLENOL [Suspect]
     Active Substance: ACETAMINOPHEN
     Indication: Dizziness
  7. TYLENOL [Suspect]
     Active Substance: ACETAMINOPHEN
     Indication: Peripheral swelling
  8. TYLENOL [Suspect]
     Active Substance: ACETAMINOPHEN
     Indication: Weight abnormal

REACTIONS (3)
  - Therapeutic product effect incomplete [Unknown]
  - Product use in unapproved indication [Unknown]
  - Therapeutic response unexpected [Unknown]
